FAERS Safety Report 23570836 (Version 2)
Quarter: 2024Q2

REPORT INFORMATION
  Report Type: Spontaneous
  Country: SK (occurrence: SK)
  Receive Date: 20240227
  Receipt Date: 20240415
  Transmission Date: 20240716
  Serious: No
  Sender: FDA-Public Use
  Company Number: SK-002147023-NVSC2023SK053206

PATIENT
  Age: 3 Year
  Sex: Female

DRUGS (7)
  1. ELTROMBOPAG OLAMINE [Suspect]
     Active Substance: ELTROMBOPAG OLAMINE
     Indication: Immune thrombocytopenia
     Dosage: UNK
     Route: 065
     Dates: start: 20211106
  2. ELTROMBOPAG OLAMINE [Suspect]
     Active Substance: ELTROMBOPAG OLAMINE
     Dosage: 1X75MG
     Route: 065
     Dates: start: 20211210, end: 20220117
  3. RITUXIMAB [Suspect]
     Active Substance: RITUXIMAB
     Indication: Pancytopenia
     Dosage: 375 MG/M2
     Route: 042
     Dates: start: 20220117
  4. RITUXIMAB [Suspect]
     Active Substance: RITUXIMAB
     Indication: Cytopenia
     Dosage: 375 MG/M2
     Route: 042
     Dates: start: 20220124
  5. RITUXIMAB [Suspect]
     Active Substance: RITUXIMAB
     Indication: Kabuki make-up syndrome
     Dosage: 375 MG/M2
     Route: 042
     Dates: start: 20220204
  6. RITUXIMAB [Suspect]
     Active Substance: RITUXIMAB
     Dosage: 375 MG/M2
     Route: 042
     Dates: start: 20220214
  7. SOLU-MEDROL [Suspect]
     Active Substance: METHYLPREDNISOLONE SODIUM SUCCINATE
     Indication: Cytopenia
     Dosage: 5-10 MG/KG,
     Route: 065

REACTIONS (2)
  - Treatment failure [Unknown]
  - Product use issue [Unknown]
